FAERS Safety Report 4312036-X (Version None)
Quarter: 2004Q1

REPORT INFORMATION
  Report Type: 
  Country: None (occurrence: None)
  Receive Date: 20040303
  Receipt Date: 20040220
  Transmission Date: 20041129
  Serious: Yes (Death)
  Sender: FDA-Public Use
  Company Number: 20020319GR

PATIENT
  Age: 71 Year
  Sex: Male

DRUGS (2)
  1. CELEBREX [Suspect]
     Indication: BACK PAIN
     Dosage: 100 MG, BID,ORAL
     Route: 048
     Dates: start: 20040201, end: 20040201
  2. ANTI-HYPERTENSIVE AGENT [Concomitant]

REACTIONS (2)
  - HYPERTENSIVE CRISIS [None]
  - MYOCARDIAL INFARCTION [None]
